FAERS Safety Report 6860782-6 (Version None)
Quarter: 2010Q2

REPORT INFORMATION
  Report Type: 
  Country: None (occurrence: None)
  Receive Date: 20100528
  Receipt Date: 20091203
  Transmission Date: 20101027
  Serious: Yes (Other)
  Sender: FDA-Public Use
  Company Number: CIP09000399

PATIENT
  Age: 71 Year
  Sex: Male

DRUGS (20)
  1. ACTONEL [Suspect]
     Dosage: 30 MG ONCE A WEEK, ORAL
     Route: 048
     Dates: start: 20010724, end: 20051216
  2. ZOMETA [Suspect]
     Dosage: 4 MG ONCE MONTHLY, IV NOS
     Route: 042
     Dates: start: 20020101, end: 20050414
  3. ZOCOR [Concomitant]
  4. ASPIRIN [Concomitant]
  5. FOLIC ACID [Concomitant]
  6. ATENOLOL [Concomitant]
  7. LUPRON [Concomitant]
  8. VIOXX [Concomitant]
  9. MOBIC [Concomitant]
  10. CASODEX [Concomitant]
  11. INVESTIGATIONAL DRUG [Concomitant]
  12. LIPITOR [Concomitant]
  13. CALCIUM (CALCIUM) [Concomitant]
  14. BENICAR [Concomitant]
  15. ALTACE [Concomitant]
  16. ALEVE [Concomitant]
  17. VITAMIN E /00110501/ (TOCOPHEROL) [Concomitant]
  18. VITAMIN C /00008001/ (ASCORBIC ACID) [Concomitant]
  19. ERGOCALCIFEROL [Concomitant]
  20. COENZYME Q10 /00517201/ (UBIDECARENONE) [Concomitant]

REACTIONS (20)
  - ABSCESS [None]
  - DYSPHAGIA [None]
  - ERYTHEMA [None]
  - FISTULA DISCHARGE [None]
  - GINGIVAL BLEEDING [None]
  - GINGIVAL RECESSION [None]
  - GINGIVITIS [None]
  - JAW DISORDER [None]
  - LOOSE TOOTH [None]
  - OEDEMA MOUTH [None]
  - OROANTRAL FISTULA [None]
  - OSTEOLYSIS [None]
  - OSTEONECROSIS [None]
  - PERIODONTITIS [None]
  - PRIMARY SEQUESTRUM [None]
  - RESORPTION BONE INCREASED [None]
  - SKIN INFECTION [None]
  - STOMATITIS [None]
  - STREPTOCOCCAL INFECTION [None]
  - TOOTH DEPOSIT [None]
